FAERS Safety Report 9863169 (Version 3)
Quarter: 2014Q1

REPORT INFORMATION
  Report Type: Spontaneous
  Country: US (occurrence: US)
  Receive Date: 20140203
  Receipt Date: 20140228
  Transmission Date: 20141002
  Serious: Yes (Death, Hospitalization)
  Sender: FDA-Public Use
  Company Number: US-ACTELION-A-US2014-93543

PATIENT
  Age: 9 Year
  Sex: Female

DRUGS (5)
  1. TRACLEER [Suspect]
     Indication: PULMONARY ARTERIAL HYPERTENSION
     Dosage: 20 MG, BID
     Route: 048
     Dates: start: 20131029, end: 20140125
  2. TRACLEER [Suspect]
     Dosage: 10 MG, BID
     Route: 048
     Dates: start: 20131028
  3. SILDENAFIL [Concomitant]
  4. DIGOXIN [Concomitant]
     Dosage: 50 MCG, UNK
  5. FUROSEMIDE [Concomitant]
     Dosage: 40 MG, UNK

REACTIONS (5)
  - Respiratory failure [Fatal]
  - Atrioventricular septal defect [Unknown]
  - Chronic respiratory disease [Unknown]
  - Oxygen saturation decreased [Unknown]
  - Condition aggravated [Unknown]
